FAERS Safety Report 14541875 (Version 1)
Quarter: 2018Q1

REPORT INFORMATION
  Report Type: Spontaneous
  Country: US (occurrence: US)
  Receive Date: 20180216
  Receipt Date: 20180216
  Transmission Date: 20180509
  Serious: No
  Sender: FDA-Public Use
  Company Number: US-BAUSCH-BL-2017-012837

PATIENT
  Age: 50 Year
  Sex: Female

DRUGS (1)
  1. NEOMYCIN AND POLYMYXIN B SULFATES AND HYDROCORTISONE [Suspect]
     Active Substance: HYDROCORTISONE\NEOMYCIN SULFATE\POLYMYXIN B SULFATE
     Indication: EYE INFECTION
     Route: 047
     Dates: start: 201705

REACTIONS (1)
  - Drug dispensing error [Unknown]

NARRATIVE: CASE EVENT DATE: 2017
